FAERS Safety Report 6357640-2 (Version None)
Quarter: 2009Q3

REPORT INFORMATION
  Report Type: 
  Country: None (occurrence: None)
  Receive Date: 20090916
  Receipt Date: 20090716
  Transmission Date: 20100115
  Serious: No
  Sender: FDA-Public Use
  Company Number: US-AMGEN-US355911

PATIENT
  Sex: Female
  Weight: 90 kg

DRUGS (11)
  1. NPLATE [Suspect]
     Indication: IDIOPATHIC THROMBOCYTOPENIC PURPURA
     Route: 058
     Dates: start: 20090629
  2. JANUVIA [Concomitant]
  3. GLIMEPIRIDE [Concomitant]
  4. FOLIC ACID [Concomitant]
  5. CALCIUM WITH VITAMIN D [Concomitant]
  6. PREDNISONE [Concomitant]
  7. VITAMIN B-12 [Concomitant]
  8. LISINOPRIL [Concomitant]
  9. POTASSIUM CHLORIDE [Concomitant]
  10. CORTICOSTEROIDS [Concomitant]
     Dates: start: 20041205
  11. AZATHIOPRINE [Concomitant]

REACTIONS (1)
  - DYSGEUSIA [None]
